FAERS Safety Report 10204504 (Version 1)
Quarter: 2014Q2

REPORT INFORMATION
  Report Type: Spontaneous
  Country: US (occurrence: US)
  Receive Date: 20140529
  Receipt Date: 20140529
  Transmission Date: 20141212
  Serious: No
  Sender: FDA-Public Use
  Company Number: US-SANOFI-AVENTIS-2013SA063874

PATIENT
  Sex: 0

DRUGS (3)
  1. LANTUS SOLOSTAR [Suspect]
     Dosage: DOSE:8 UNIT(S)
     Route: 058
  2. SOLOSTAR [Suspect]
  3. GLIPIZIDE [Concomitant]
     Dosage: FREQUENCY- WITH EACH MEAL

REACTIONS (5)
  - Myalgia [Unknown]
  - Renal function test abnormal [Unknown]
  - Blood glucose increased [Unknown]
  - Incorrect product storage [Unknown]
  - Expired product administered [Unknown]
